FAERS Safety Report 25760608 (Version 1)
Quarter: 2025Q3

REPORT INFORMATION
  Report Type: Spontaneous
  Country: US (occurrence: None)
  Receive Date: 20250904
  Receipt Date: 20250904
  Transmission Date: 20251021
  Serious: Yes (Hospitalization)
  Sender: FDA-CTU
  Company Number: None

PATIENT
  Sex: Female

DRUGS (11)
  1. LENALIDOMIDE [Suspect]
     Active Substance: LENALIDOMIDE
     Indication: Plasma cell myeloma
     Route: 048
     Dates: start: 20250814, end: 20250901
  2. ACETAMINOPHE [Concomitant]
  3. ALBUTEROL POW SULFATE [Concomitant]
  4. ALLOPURINOL POW [Concomitant]
  5. ASPIRIN LOW TAB [Concomitant]
  6. BACTRIM [Concomitant]
     Active Substance: SULFAMETHOXAZOLE\TRIMETHOPRIM
  7. BOTOX [Concomitant]
     Active Substance: ONABOTULINUMTOXINA
  8. CETIRIZINE HCL [Concomitant]
     Active Substance: CETIRIZINE HYDROCHLORIDE
  9. COENZVME 010 CAP [Concomitant]
  10. CYCLOBENZAPR TAB [Concomitant]
  11. DARZALEX  SOL [Concomitant]

REACTIONS (3)
  - Diarrhoea [None]
  - Loss of consciousness [None]
  - Feeling cold [None]
